FAERS Safety Report 7552937-2 (Version None)
Quarter: 2011Q2

REPORT INFORMATION
  Report Type: 
  Country: None (occurrence: None)
  Receive Date: 20110616
  Receipt Date: 20101015
  Transmission Date: 20111010
  Serious: No
  Sender: FDA-Public Use
  Company Number: US-ASTRAZENECA-2010SE48972

PATIENT
  Sex: Female

DRUGS (3)
  1. FASLODEX [Suspect]
     Indication: BREAST CANCER
     Route: 030
     Dates: end: 20100101
  2. FASLODEX [Suspect]
     Route: 030
     Dates: end: 20100101
  3. FASLODEX [Suspect]
     Route: 030

REACTIONS (1)
  - ARTHRALGIA [None]
